FAERS Safety Report 4550567-8 (Version None)
Quarter: 2004Q4

REPORT INFORMATION
  Report Type: 
  Country: None (occurrence: None)
  Receive Date: 20041227
  Receipt Date: 20041119
  Transmission Date: 20050328
  Serious: No
  Sender: FDA-Public Use
  Company Number: 04P-163-0281156-00

PATIENT
  Age: 57 Year
  Sex: Female
  Weight: 79.3795 kg

DRUGS (8)
  1. HUMIRA [Suspect]
     Indication: RHEUMATOID ARTHRITIS
     Dosage: 40 MG, 1 IN 2 WK, SUBCUTANEOUS
     Route: 058
     Dates: start: 20040701, end: 20040901
  2. METHOTREXATE SODIUM [Concomitant]
  3. SULFASALAZINE [Concomitant]
  4. LANSOPRAZOLE [Concomitant]
  5. FOLINIC ACID [Concomitant]
  6. FOLIC ACID [Concomitant]
  7. CYANOCOBALAMIN [Concomitant]
  8. FERROUS SULFATE TAB [Concomitant]

REACTIONS (2)
  - DYSPNOEA [None]
  - PARAESTHESIA [None]
